FAERS Safety Report 24010209 (Version 2)
Quarter: 2024Q3

REPORT INFORMATION
  Report Type: Spontaneous
  Country: HU (occurrence: HU)
  Receive Date: 20240625
  Receipt Date: 20240715
  Transmission Date: 20241017
  Serious: Yes (Other)
  Sender: BAUSCH AND LOMB
  Company Number: HU-INCYTE CORPORATION-2024IN006240

PATIENT
  Sex: Male

DRUGS (3)
  1. DEXAMETHASONE [Suspect]
     Active Substance: DEXAMETHASONE
     Indication: Follicular lymphoma
     Dosage: DEXAMETHASONE-CYTARABINE-CARBOPLATIN (DHAC) PROTOCOL
     Route: 065
  2. CYTARABINE [Suspect]
     Active Substance: CYTARABINE
     Indication: Follicular lymphoma
     Dosage: DEXAMETHASONE-CYTARABINE-CARBOPLATIN (DHAC) PROTOCOL
     Route: 065
  3. CARBOPLATIN [Suspect]
     Active Substance: CARBOPLATIN
     Indication: Follicular lymphoma
     Dosage: DEXAMETHASONE-CYTARABINE-CARBOPLATIN (DHAC) PROTOCOL
     Route: 065

REACTIONS (1)
  - Therapy partial responder [Unknown]
